FAERS Safety Report 4668237-4 (Version None)
Quarter: 2005Q2

REPORT INFORMATION
  Report Type: 
  Country: None (occurrence: None)
  Receive Date: 20050523
  Receipt Date: 20050224
  Transmission Date: 20051028
  Serious: Yes (Hospitalization, Other)
  Sender: FDA-Public Use
  Company Number: PHEH2005US02461

PATIENT
  Age: 76 Year
  Sex: Female

DRUGS (2)
  1. ZOMETA [Suspect]
     Indication: MULTIPLE MYELOMA
     Dosage: UNK, UNK
     Route: 042
     Dates: end: 20040901
  2. THALIDOMIDE [Concomitant]

REACTIONS (7)
  - ABSCESS [None]
  - BONE INFECTION [None]
  - FISTULA [None]
  - INCISIONAL DRAINAGE [None]
  - OSTEONECROSIS [None]
  - PAIN [None]
  - WOUND TREATMENT [None]
